FAERS Safety Report 7556623-4 (Version None)
Quarter: 2011Q2

REPORT INFORMATION
  Report Type: 
  Country: None (occurrence: None)
  Receive Date: 20110610
  Receipt Date: 20110531
  Transmission Date: 20111010
  Serious: Yes (Other)
  Sender: FDA-Public Use
  Company Number: 2011SP025477

PATIENT
  Age: 41 Year
  Sex: Female

DRUGS (5)
  1. CELESTON CRONODOSE 9BETAMETHASONE SODIUM PHOSPHATE/ACETATE) [Suspect]
     Indication: SCIATICA
     Dosage: 2 ML, IM
     Route: 030
     Dates: start: 20110316, end: 20110323
  2. LAMICTAL [Concomitant]
  3. NOCTAMID [Concomitant]
  4. TRAMADOL HCL [Concomitant]
  5. SINOGAN [Concomitant]

REACTIONS (2)
  - COORDINATION ABNORMAL [None]
  - DYSKINESIA [None]
